FAERS Safety Report 8121549-4 (Version None)
Quarter: 2011Q4

REPORT INFORMATION
  Report Type: 
  Country: None (occurrence: None)
  Receive Date: 20111227
  Receipt Date: 20111129
  Transmission Date: 20120403
  Serious: No
  Sender: FDA-Public Use
  Company Number: PHEH2011US04182

PATIENT
  Age: 63 Year
  Sex: Female

DRUGS (12)
  1. ACIPHEX [Concomitant]
  2. SIMVASTATIN [Suspect]
     Dosage: 40 MG
  3. DOXEPIN HCL [Concomitant]
  4. GILENYA [Suspect]
     Indication: MULTIPLE SCLEROSIS
     Dosage: 0.5 MG, QD, ORAL
     Route: 048
     Dates: start: 20110909
  5. VESICARE [Concomitant]
  6. PIROXICAM [Concomitant]
  7. PREMARIN [Concomitant]
  8. EFFIENT (PRASUGREL HYDROCHLORIDE) [Concomitant]
  9. METOPROLOL TARTRATE [Concomitant]
  10. LISINOPRIL [Suspect]
     Dosage: QD
  11. PRAMIPEXOLE DIHYDROCHLORIDE [Concomitant]
  12. PROVIGIL [Concomitant]

REACTIONS (4)
  - ALOPECIA [None]
  - URTICARIA [None]
  - PRURITUS [None]
  - ERYTHEMA [None]
